FAERS Safety Report 25789054 (Version 1)
Quarter: 2025Q3

REPORT INFORMATION
  Report Type: Spontaneous
  Country: US (occurrence: US)
  Receive Date: 20250911
  Receipt Date: 20250911
  Transmission Date: 20251021
  Serious: No
  Sender: ROCHE
  Company Number: US-ROCHE-10000378936

PATIENT
  Sex: Male

DRUGS (3)
  1. ACTEMRA ACTPEN [Suspect]
     Active Substance: TOCILIZUMAB
     Indication: Rhinitis allergic
     Dosage: STRENGTH: 162 MG/0.9M
     Route: 058
     Dates: start: 202501
  2. DOFETILIDE [Concomitant]
     Active Substance: DOFETILIDE
  3. SILDENAFIL CITRATE [Concomitant]
     Active Substance: SILDENAFIL CITRATE

REACTIONS (3)
  - Respiratory disorder [Unknown]
  - Ill-defined disorder [Unknown]
  - Off label use [Unknown]
